FAERS Safety Report 15407690 (Version 6)
Quarter: 2019Q3

REPORT INFORMATION
  Report Type: Report from Study
  Country: AR (occurrence: AR)
  Receive Date: 20180920
  Receipt Date: 20190820
  Transmission Date: 20191004
  Serious: Yes (Hospitalization, Other)
  Sender: FDA-Public Use
  Company Number: AR-ACTELION-A-CH2018-179037

PATIENT
  Age: 41 Year
  Sex: Female
  Weight: 64 kg

DRUGS (2)
  1. VELETRI [Suspect]
     Active Substance: EPOPROSTENOL
     Indication: PULMONARY ARTERIAL HYPERTENSION
     Dosage: 1 NG/KG, PER MIN
     Route: 042
     Dates: start: 20170601
  2. AMBRISENTAN [Concomitant]
     Active Substance: AMBRISENTAN

REACTIONS (7)
  - Device occlusion [Recovering/Resolving]
  - Generalised erythema [Recovering/Resolving]
  - Constipation [Recovering/Resolving]
  - Hypersensitivity [Recovering/Resolving]
  - Surgery [Unknown]
  - Therapy cessation [Recovering/Resolving]
  - Catheterisation cardiac [Unknown]

NARRATIVE: CASE EVENT DATE: 20190520
